FAERS Safety Report 23720226 (Version 3)
Quarter: 2024Q2

REPORT INFORMATION
  Report Type: Report from Study
  Country: CN (occurrence: CN)
  Receive Date: 20240408
  Receipt Date: 20240424
  Transmission Date: 20240716
  Serious: No
  Sender: FDA-Public Use
  Company Number: CN-ROCHE-3525780

PATIENT
  Sex: Male

DRUGS (2)
  1. GAVRETO [Suspect]
     Active Substance: PRALSETINIB
     Indication: Non-small cell lung cancer
     Route: 048
     Dates: start: 202301
  2. GAVRETO [Suspect]
     Active Substance: PRALSETINIB
     Route: 048

REACTIONS (2)
  - Heart rate increased [Recovering/Resolving]
  - Hypertension [Recovering/Resolving]
